FAERS Safety Report 19923340 (Version 1)
Quarter: 2021Q4

REPORT INFORMATION
  Report Type: Spontaneous
  Country: US (occurrence: US)
  Receive Date: 20211006
  Receipt Date: 20211006
  Transmission Date: 20220303
  Serious: No
  Sender: FDA-Public Use
  Company Number: US-GLAXOSMITHKLINE-USCH2021063364

PATIENT

DRUGS (2)
  1. AQUAFRESH EXTREME CLEAN WHITENING ACTION [Suspect]
     Active Substance: SODIUM FLUORIDE
     Indication: Product used for unknown indication
     Dosage: UNK
  2. ADVIL PM [Suspect]
     Active Substance: DIPHENHYDRAMINE CITRATE\IBUPROFEN
     Indication: Product used for unknown indication
     Dosage: UNK

REACTIONS (3)
  - Restlessness [Unknown]
  - Drug ineffective [Unknown]
  - Therapeutic product effect variable [Unknown]
